FAERS Safety Report 11790386 (Version 1)
Quarter: 2015Q4

REPORT INFORMATION
  Report Type: Report from Study
  Country: CN (occurrence: CN)
  Receive Date: 20151201
  Receipt Date: 20151201
  Transmission Date: 20160305
  Serious: Yes (Hospitalization, Other)
  Sender: FDA-Public Use
  Company Number: CN-OTSUKA-2015_015727

PATIENT
  Age: 56 Year
  Sex: Male

DRUGS (5)
  1. BLINDED *PLACEBO [Suspect]
     Active Substance: INVESTIGATIONAL PRODUCT
     Indication: HYPERCHOLESTEROLAEMIA
     Dosage: UNK, BID
     Route: 048
     Dates: start: 20141126
  2. BLINDED CILOSTAZOL [Suspect]
     Active Substance: CILOSTAZOL
     Indication: HYPERCHOLESTEROLAEMIA
     Dosage: UNK, BID
     Route: 048
     Dates: start: 20141126
  3. PROBUCOL [Suspect]
     Active Substance: PROBUCOL
     Indication: HYPERCHOLESTEROLAEMIA
     Dosage: 500 MG, BID
     Route: 048
     Dates: start: 20141126
  4. ASPIRIN. [Concomitant]
     Active Substance: ASPIRIN
     Indication: CORONARY ARTERY DISEASE
     Dosage: 100 MG, QD
     Route: 048
     Dates: start: 20110405
  5. AMLODIPINE [Concomitant]
     Active Substance: AMLODIPINE BESYLATE
     Indication: HYPERTENSION
     Dosage: 2.5 MG, QD
     Route: 048
     Dates: start: 20151109

REACTIONS (1)
  - Angina unstable [Recovered/Resolved]

NARRATIVE: CASE EVENT DATE: 20151105
